FAERS Safety Report 10256801 (Version 1)
Quarter: 2014Q2

REPORT INFORMATION
  Report Type: Report from Study
  Country: US (occurrence: US)
  Receive Date: 20140624
  Receipt Date: 20140624
  Transmission Date: 20141212
  Serious: Yes (Other)
  Sender: FDA-Public Use
  Company Number: US-MYLANLABS-2014S1011878

PATIENT
  Age: 18 Year
  Sex: Male

DRUGS (3)
  1. AMNESTEEM CAPSULES [Suspect]
     Indication: ACNE
     Dates: start: 2014, end: 201405
  2. MYORISAN [Suspect]
     Indication: ACNE
     Dates: start: 2014, end: 201405
  3. CLARAVIS [Suspect]
     Indication: ACNE
     Dates: start: 201403, end: 201405

REACTIONS (3)
  - Suicidal ideation [Recovered/Resolved]
  - Depression [Recovered/Resolved]
  - Mood altered [Recovered/Resolved]
